FAERS Safety Report 10389229 (Version 3)
Quarter: 2015Q4

REPORT INFORMATION
  Report Type: Spontaneous
  Country: DK (occurrence: DK)
  Receive Date: 20140818
  Receipt Date: 20151217
  Transmission Date: 20160304
  Serious: Yes (Other)
  Sender: FDA-Public Use
  Company Number: PHHY2014DK096933

PATIENT
  Age: 69 Year
  Sex: Female
  Weight: 94 kg

DRUGS (3)
  1. INFLUENZA VIRUS [Concomitant]
     Active Substance: INFLUENZA VIRUS VACCINE
     Indication: INFLUENZA IMMUNISATION
     Route: 065
     Dates: start: 2000, end: 2013
  2. CORODIL COMP [Suspect]
     Active Substance: ENALAPRIL MALEATE\HYDROCHLOROTHIAZIDE
     Dosage: STYRKE: 20 + 12,5 MG.
     Route: 048
     Dates: start: 2004, end: 20140606
  3. CORODIL COMP [Suspect]
     Active Substance: ENALAPRIL MALEATE\HYDROCHLOROTHIAZIDE
     Indication: HYPERTENSION
     Dosage: 1 DF, QD
     Route: 048
     Dates: start: 2004, end: 20140606

REACTIONS (4)
  - Eye pruritus [Not Recovered/Not Resolved]
  - Pemphigoid [Not Recovered/Not Resolved]
  - Eye swelling [Not Recovered/Not Resolved]
  - Vulvovaginal pruritus [Not Recovered/Not Resolved]

NARRATIVE: CASE EVENT DATE: 20131105
